FAERS Safety Report 9526402 (Version 2)
Quarter: 2013Q3

REPORT INFORMATION
  Report Type: Report from Study
  Country: JP (occurrence: JP)
  Receive Date: 20130916
  Receipt Date: 20130916
  Transmission Date: 20140515
  Serious: Yes (Death, Life-Threatening, Hospitalization, Other)
  Sender: FDA-Public Use
  Company Number: JP-TAKEDA-TCI2012A03487

PATIENT
  Age: 74 Year
  Sex: Male
  Weight: 75 kg

DRUGS (14)
  1. PIOGLITAZONE [Suspect]
     Indication: TYPE 2 DIABETES MELLITUS
     Route: 048
     Dates: start: 20080527
  2. PIOGLITAZONE [Suspect]
     Route: 048
  3. PIOGLITAZONE [Suspect]
     Route: 048
  4. PIOGLITAZONE [Suspect]
     Route: 048
     Dates: end: 20100610
  5. PIOGLITAZONE [Suspect]
     Route: 048
  6. PIOGLITAZONE [Suspect]
     Route: 048
  7. SULFONAMIDES, UREA DERIVATIVES [Concomitant]
     Indication: TYPE 2 DIABETES MELLITUS
     Route: 048
  8. SULFONAMIDES, UREA DERIVATIVES [Concomitant]
     Route: 048
  9. DIURETICS [Concomitant]
     Indication: HYPERTENSION
     Route: 065
  10. DIURETICS [Concomitant]
     Route: 065
  11. CALCIUM CHANNEL BLOCKERS [Concomitant]
     Indication: HYPERTENSION
     Route: 065
  12. CALCIUM CHANNEL BLOCKERS [Concomitant]
     Route: 065
  13. ANGIOTENSIN II ANTAGONISTS [Concomitant]
     Indication: HYPERTENSION
     Route: 048
  14. ANGIOTENSIN II ANTAGONISTS [Concomitant]
     Route: 048

REACTIONS (4)
  - Plasma cell myeloma [Fatal]
  - Blood creatinine increased [Fatal]
  - Blood calcium increased [Fatal]
  - Blood uric acid increased [Not Recovered/Not Resolved]
